FAERS Safety Report 6847282-4 (Version None)
Quarter: 2010Q3

REPORT INFORMATION
  Report Type: 
  Country: None (occurrence: None)
  Receive Date: 20100713
  Receipt Date: 20100630
  Transmission Date: 20110219
  Serious: Yes (Death, Congenital Anomaly)
  Sender: FDA-Public Use
  Company Number: 014647

PATIENT
  Sex: Male
  Weight: 2.4 kg

DRUGS (1)
  1. KEPPRA [Suspect]
     Dosage: (3000 MG QD TRANSPLACENTAL)
     Route: 064

REACTIONS (3)
  - CAESAREAN SECTION [None]
  - HEART DISEASE CONGENITAL [None]
  - MATERNAL DRUGS AFFECTING FOETUS [None]
